FAERS Safety Report 6816830-2 (Version None)
Quarter: 2010Q3

REPORT INFORMATION
  Report Type: 
  Country: None (occurrence: None)
  Receive Date: 20100706
  Receipt Date: 20100628
  Transmission Date: 20110219
  Serious: Yes (Other)
  Sender: FDA-Public Use
  Company Number: CA-ASTRAZENECA-2010SE30382

PATIENT
  Age: 79 Year
  Sex: Female
  Weight: 65.8 kg

DRUGS (8)
  1. ATACAND [Suspect]
     Route: 048
  2. RENEDIL [Suspect]
     Route: 048
  3. ACTONEL [Concomitant]
  4. CALCIUM CARBONATE [Concomitant]
  5. CRESTOR [Concomitant]
  6. EZETROL [Concomitant]
  7. SANDOZ BISOPROLOL [Concomitant]
  8. VITAMIN D [Concomitant]

REACTIONS (3)
  - KIDNEY INFECTION [None]
  - POLLAKIURIA [None]
  - RENAL DISORDER [None]
